FAERS Safety Report 5729662-3 (Version None)
Quarter: 2008Q2

REPORT INFORMATION
  Report Type: 
  Country: None (occurrence: None)
  Receive Date: 20080501
  Receipt Date: 20080423
  Transmission Date: 20081010
  Serious: Yes (Death)
  Sender: FDA-Public Use
  Company Number: GXKR2008ES03896

PATIENT
  Age: 43 Year
  Sex: Male

DRUGS (3)
  1. MYCOPHENOLATE MOFETIL [Suspect]
     Indication: IMMUNOSUPPRESSION
     Dates: start: 20001001
  2. PREDNISOLONE [Suspect]
     Indication: IMMUNOSUPPRESSION
     Dates: start: 20001001
  3. TACROLIMUS [Suspect]
     Indication: IMMUNOSUPPRESSION
     Dates: start: 20001001

REACTIONS (10)
  - ANAEMIA [None]
  - ANOREXIA [None]
  - ASTHENIA [None]
  - BONE PAIN [None]
  - HAEMODIALYSIS [None]
  - LYMPHADENOPATHY MEDIASTINAL [None]
  - METASTASES TO LUNG [None]
  - METASTATIC RENAL CELL CARCINOMA [None]
  - PNEUMOTHORAX [None]
  - REMOVAL OF RENAL TRANSPLANT [None]
